FAERS Safety Report 4637980-5 (Version None)
Quarter: 2005Q2

REPORT INFORMATION
  Report Type: 
  Country: None (occurrence: None)
  Receive Date: 20050415
  Receipt Date: 20050407
  Transmission Date: 20051028
  Serious: Yes (Hospitalization)
  Sender: FDA-Public Use
  Company Number: FRWYE390101FEB05

PATIENT
  Age: 35 Year
  Sex: Male

DRUGS (2)
  1. EFFEXOR XR [Suspect]
     Dosage: 2 CAPSULE 1X PER 1 DAY ORAL
     Route: 048
     Dates: start: 20041101, end: 20050101
  2. EFFEXOR [Suspect]
     Dosage: 3 CAPSULE 1X PER 1 DAY ORAL
     Route: 048
     Dates: start: 20050101, end: 20050101

REACTIONS (5)
  - BLOOD THYROID STIMULATING HORMONE INCREASED [None]
  - HAEMATOSPERMIA [None]
  - HAEMATURIA [None]
  - PROSTATITIS [None]
  - WHITE BLOOD CELL COUNT INCREASED [None]
